FAERS Safety Report 7370490-3 (Version None)
Quarter: 2011Q1

REPORT INFORMATION
  Report Type: 
  Country: None (occurrence: None)
  Receive Date: 20110323
  Receipt Date: 20110322
  Transmission Date: 20110831
  Serious: Yes (Death, Hospitalization)
  Sender: FDA-Public Use
  Company Number: PHHO2008DE12119

PATIENT
  Sex: Male

DRUGS (9)
  1. MERONEM [Suspect]
  2. CASPOFUNGIN [Suspect]
  3. DECORTIN [Concomitant]
     Indication: RENAL TRANSPLANT
     Dosage: UNK
     Route: 048
     Dates: start: 20080327, end: 20080626
  4. SANDIMMUNE [Suspect]
     Indication: RENAL TRANSPLANT
  5. NO TREATMENT RECEIVED [Suspect]
     Indication: RENAL TRANSPLANT
     Dosage: UNK
  6. RIFAMPICIN [Suspect]
  7. TACROLIMUS [Concomitant]
     Indication: RENAL TRANSPLANT
     Dosage: UNK
     Dates: start: 20080709
  8. CARBIMAZOLE [Suspect]
  9. ISONIAZID [Suspect]

REACTIONS (8)
  - GASTROINTESTINAL HAEMORRHAGE [None]
  - HEPATOTOXICITY [None]
  - PNEUMONIA [None]
  - CHOLESTASIS [None]
  - VANISHING BILE DUCT SYNDROME [None]
  - SEPSIS [None]
  - CHOLANGITIS [None]
  - HEPATIC FAILURE [None]
